FAERS Safety Report 5748416-5 (Version None)
Quarter: 2008Q2

REPORT INFORMATION
  Report Type: 
  Country: None (occurrence: None)
  Receive Date: 20080523
  Receipt Date: 20080516
  Transmission Date: 20081010
  Serious: Yes (Other)
  Sender: FDA-Public Use
  Company Number: JP-MERCK-0805USA04587

PATIENT
  Age: 62 Year
  Sex: Male

DRUGS (4)
  1. HYZAAR [Suspect]
     Indication: HYPERTENSION
     Route: 048
     Dates: start: 20080311, end: 20080512
  2. CALSLOT [Concomitant]
     Indication: HYPERTENSION
     Route: 048
  3. NITOROL-R [Concomitant]
     Indication: ANGINA PECTORIS
     Route: 048
  4. DEPAS [Concomitant]
     Indication: ANXIETY
     Route: 048

REACTIONS (2)
  - BLOOD CREATINE PHOSPHOKINASE INCREASED [None]
  - PAIN IN EXTREMITY [None]
